FAERS Safety Report 4668368-9 (Version None)
Quarter: 2005Q2

REPORT INFORMATION
  Report Type: 
  Country: None (occurrence: None)
  Receive Date: 20050523
  Receipt Date: 20050512
  Transmission Date: 20051028
  Serious: Yes (Other)
  Sender: FDA-Public Use
  Company Number: US-JNJFOC-20050503434

PATIENT
  Sex: Female

DRUGS (22)
  1. INFLIXIMAB [Suspect]
     Indication: RHEUMATOID ARTHRITIS
     Route: 042
  2. CALCIUM GLUCONATE [Concomitant]
  3. LOTENSIN [Concomitant]
  4. MULTI-VITAMIN [Concomitant]
  5. MULTI-VITAMIN [Concomitant]
  6. MULTI-VITAMIN [Concomitant]
  7. MULTI-VITAMIN [Concomitant]
  8. MULTI-VITAMIN [Concomitant]
  9. MULTI-VITAMIN [Concomitant]
  10. MULTI-VITAMIN [Concomitant]
  11. MULTI-VITAMIN [Concomitant]
  12. PREDNISONE [Concomitant]
  13. SYNTHROID [Concomitant]
  14. TEGRETOL [Concomitant]
  15. VIOXX [Concomitant]
  16. PROTONIX [Concomitant]
  17. LIPITOR [Concomitant]
  18. GLUCOSAMINE/CHONDROITIN [Concomitant]
  19. GLUCOSAMINE/CHONDROITIN [Concomitant]
  20. GLUCOSAMINE/CHONDROITIN [Concomitant]
  21. GLUCOSAMINE/CHONDROITIN [Concomitant]
  22. TYLENOL [Concomitant]

REACTIONS (1)
  - SQUAMOUS CELL CARCINOMA OF SKIN [None]
